FAERS Safety Report 7429704-3 (Version None)
Quarter: 2011Q2

REPORT INFORMATION
  Report Type: 
  Country: None (occurrence: None)
  Receive Date: 20110421
  Receipt Date: 20110415
  Transmission Date: 20111010
  Serious: Yes (Hospitalization)
  Sender: FDA-Public Use
  Company Number: US-B.I. PHARMACEUTICALS,INC./RIDGEFIELD-2011-BP-02577BP

PATIENT
  Age: 74 Year
  Sex: Male

DRUGS (6)
  1. PRADAXA [Suspect]
     Dosage: 300 MG
     Dates: start: 20110110
  2. ZEMPLAR [Concomitant]
  3. LEVOTHYROXINE SODIUM [Concomitant]
  4. DILANTIN [Concomitant]
  5. FERROUS SULFATE TAB [Concomitant]
  6. CARDIZEM [Concomitant]

REACTIONS (4)
  - PHARYNGEAL MASS [None]
  - FALL [None]
  - GASTROINTESTINAL HAEMORRHAGE [None]
  - HAEMATOCHEZIA [None]
